FAERS Safety Report 19752743 (Version 3)
Quarter: 2025Q3

REPORT INFORMATION
  Report Type: Report from Study
  Country: BR (occurrence: BR)
  Receive Date: 20210826
  Receipt Date: 20250707
  Transmission Date: 20251020
  Serious: Yes (Other)
  Sender: NOVARTIS
  Company Number: PHHY2019BR174022

PATIENT
  Sex: Male

DRUGS (3)
  1. COSENTYX [Suspect]
     Active Substance: SECUKINUMAB
     Indication: Ankylosing spondylitis
     Route: 065
     Dates: start: 20190722
  2. COSENTYX [Suspect]
     Active Substance: SECUKINUMAB
     Route: 065
     Dates: start: 20190727
  3. COSENTYX [Suspect]
     Active Substance: SECUKINUMAB
     Route: 065
     Dates: start: 20210816

REACTIONS (6)
  - Rheumatic disorder [Unknown]
  - Arthralgia [Recovered/Resolved]
  - Pain in extremity [Unknown]
  - Concomitant disease aggravated [Unknown]
  - Malaise [Recovering/Resolving]
  - Product availability issue [Unknown]
